FAERS Safety Report 16548969 (Version 4)
Quarter: 2019Q3

REPORT INFORMATION
  Report Type: Report from Study
  Country: US (occurrence: US)
  Receive Date: 20190709
  Receipt Date: 20190814
  Transmission Date: 20191004
  Serious: Yes (Hospitalization)
  Sender: FDA-Public Use
  Company Number: US-ACTELION-A-NJ2019-191112

PATIENT
  Age: 70 Year
  Sex: Male
  Weight: 88.44 kg

DRUGS (17)
  1. INSULIN [Concomitant]
     Active Substance: INSULIN NOS
  2. BUMETANIDE. [Concomitant]
     Active Substance: BUMETANIDE
     Dosage: 20 MG, 1 1/2 TAB BID
     Dates: start: 201904
  3. TOUJEO [Concomitant]
     Active Substance: INSULIN GLARGINE
     Dosage: 50 UNITS DAILY SQ
  4. LYRICA [Concomitant]
     Active Substance: PREGABALIN
     Dosage: 75 MG, OD
     Dates: start: 201904
  5. BRIMONIDINE [Concomitant]
     Active Substance: BRIMONIDINE TARTRATE
     Dosage: 0.15%1 DROP EACH EYE 2 TIMES A  DAY
  6. POTASSIUM CHLORIDE. [Concomitant]
     Active Substance: POTASSIUM CHLORIDE
     Dosage: 10 MEQ, OD
     Dates: start: 201904
  7. NOVOLOG [Concomitant]
     Active Substance: INSULIN ASPART
     Dosage: SLIDING SCALE 3 TIMES PER DAY
  8. OPSUMIT [Suspect]
     Active Substance: MACITENTAN
     Indication: PULMONARY ARTERIAL HYPERTENSION
     Dosage: 10 MG, QD
     Route: 048
     Dates: start: 201904
  9. OMEPRAZOLE. [Concomitant]
     Active Substance: OMEPRAZOLE
     Dosage: 20 MG, OD
     Dates: start: 20190412
  10. SPIRONOLACTONE. [Concomitant]
     Active Substance: SPIRONOLACTONE
     Dosage: 50 MG,1/2 TAB BID
     Dates: start: 201904
  11. CETRIZINE [Concomitant]
     Active Substance: CETIRIZINE HYDROCHLORIDE
     Dosage: 10 MG, DAILY AS NEEDED
  12. XIFAXAN [Concomitant]
     Active Substance: RIFAXIMIN
     Dosage: 550 MG, BID
  13. TADALAFIL. [Concomitant]
     Active Substance: TADALAFIL
     Dosage: 20 MG,  TAB DAILY
     Dates: start: 201904
  14. TIMOLOL. [Concomitant]
     Active Substance: TIMOLOL
     Dosage: 0.05% 1 DROP EACH EYE
  15. OPSUMIT [Suspect]
     Active Substance: MACITENTAN
     Dosage: 10 MG, QD
     Route: 048
     Dates: start: 20190501
  16. TADALAFIL. [Concomitant]
     Active Substance: TADALAFIL
     Dosage: UNK
     Dates: start: 201904
  17. LATANOPROST AL [Concomitant]
     Dosage: 0.005%   1 DROP EACH EYE DAILY

REACTIONS (18)
  - Chronic kidney disease [Recovering/Resolving]
  - Lethargy [Recovering/Resolving]
  - Confusional state [Recovering/Resolving]
  - Condition aggravated [Unknown]
  - Infection [Unknown]
  - Renal impairment [Not Recovered/Not Resolved]
  - Peripheral swelling [Unknown]
  - Oedema [Unknown]
  - Blood glucose decreased [Not Recovered/Not Resolved]
  - Feeling abnormal [Unknown]
  - Loss of consciousness [Recovering/Resolving]
  - Concomitant disease aggravated [Not Recovered/Not Resolved]
  - Fluid retention [Unknown]
  - Dizziness [Recovering/Resolving]
  - Swelling [Unknown]
  - Nasopharyngitis [Unknown]
  - Abnormal weight gain [Not Recovered/Not Resolved]
  - Encephalopathy [Unknown]

NARRATIVE: CASE EVENT DATE: 201904
